FAERS Safety Report 18609265 (Version 2)
Quarter: 2020Q4

REPORT INFORMATION
  Report Type: Report from Study
  Country: DE (occurrence: DE)
  Receive Date: 20201214
  Receipt Date: 20201221
  Transmission Date: 20210114
  Serious: Yes (Hospitalization)
  Sender: FDA-Public Use
  Company Number: DE-ROCHE-2728229

PATIENT
  Age: 73 Year
  Sex: Male
  Weight: 100 kg

DRUGS (10)
  1. ATEZOLIZUMAB. [Suspect]
     Active Substance: ATEZOLIZUMAB
     Indication: GASTRIC CANCER
     Dosage: ON DAY 1 ONCE IN 2 WEEKS OVER 1 HOUR?DATE OF LAST DOSE OF ATEZOLIZUMAB INFUSION PRIOR TO EVENT ONSET
     Route: 042
  2. 5-FLUOROURACIL [Suspect]
     Active Substance: FLUOROURACIL
     Indication: OESOPHAGEAL ADENOCARCINOMA
  3. DOCETAXEL. [Suspect]
     Active Substance: DOCETAXEL
     Indication: OESOPHAGEAL ADENOCARCINOMA
  4. LEUCOVORIN. [Suspect]
     Active Substance: LEUCOVORIN
     Indication: GASTRIC CANCER
     Dosage: ON DAY 1 ONCE IN 2 WEEKS OVER 1 HOUR?DATE OF LAST DOSE OF LEUCOVORIN (400 MG) PRIOR TO EVENT ONSET:
     Route: 042
  5. DOCETAXEL. [Suspect]
     Active Substance: DOCETAXEL
     Indication: GASTRIC CANCER
     Dosage: ON DAY 1 ONCE IN 2 WEEKS OVER 1 HOUR?DATE OF LAST DOSE OF DOCETAXEL (400 MG) PRIOR TO EVENT ONSET: 0
     Route: 042
  6. OXALIPLATIN. [Suspect]
     Active Substance: OXALIPLATIN
     Indication: GASTRIC CANCER
     Dosage: OVER 2 HOURS?DATE OF LAST DOSE OF OXALIPLATIN (170 MG) PRIOR TO EVENT ONSET: 09/NOV/2020; 25/NOV/202
     Route: 042
  7. OXALIPLATIN. [Suspect]
     Active Substance: OXALIPLATIN
     Indication: OESOPHAGEAL ADENOCARCINOMA
  8. ATEZOLIZUMAB. [Suspect]
     Active Substance: ATEZOLIZUMAB
     Indication: OESOPHAGEAL ADENOCARCINOMA
  9. LEUCOVORIN. [Suspect]
     Active Substance: LEUCOVORIN
     Indication: OESOPHAGEAL ADENOCARCINOMA
  10. 5-FLUOROURACIL [Suspect]
     Active Substance: FLUOROURACIL
     Indication: GASTRIC CANCER
     Dosage: ON DAY 1 ONCE IN 2 WEEKS OVER 24 HOURS?DATE OF LAST DOSE OF 5-FU (5200 MG) PRIOR TO EVENT ONSET: 09/
     Route: 042

REACTIONS (1)
  - Gastrointestinal anastomotic leak [Recovered/Resolved]

NARRATIVE: CASE EVENT DATE: 20201205
